FAERS Safety Report 9602524 (Version 2)
Quarter: 2013Q4

REPORT INFORMATION
  Report Type: Spontaneous
  Country: AU (occurrence: AU)
  Receive Date: 20131007
  Receipt Date: 20131007
  Transmission Date: 20140711
  Serious: No
  Sender: FDA-Public Use
  Company Number: AU-ABBVIE-13P-008-1134949-00

PATIENT
  Age: 45 Year
  Sex: Male
  Weight: 70 kg

DRUGS (2)
  1. HUMIRA [Suspect]
     Indication: ANKYLOSING SPONDYLITIS
     Dates: start: 201306
  2. HUMIRA [Suspect]
     Indication: PSORIASIS

REACTIONS (2)
  - Paraesthesia [Not Recovered/Not Resolved]
  - Anxiety [Unknown]
